FAERS Safety Report 6848714-8 (Version None)
Quarter: 2010Q3

REPORT INFORMATION
  Report Type: 
  Country: None (occurrence: None)
  Receive Date: 20100716
  Receipt Date: 20070907
  Transmission Date: 20110219
  Serious: No
  Sender: FDA-Public Use
  Company Number: US-PFIZER INC-2007075665

PATIENT
  Sex: Female
  Weight: 28.1 kg

DRUGS (7)
  1. CHANTIX [Suspect]
     Indication: SMOKING CESSATION THERAPY
     Route: 048
     Dates: start: 20070831, end: 20070903
  2. STOOL SOFTENER [Concomitant]
  3. LOTREL [Concomitant]
     Indication: HYPERTENSION
  4. LIPITOR [Concomitant]
  5. REMERON [Concomitant]
  6. TOPROL-XL [Concomitant]
  7. KLONOPIN [Concomitant]

REACTIONS (1)
  - HEADACHE [None]
